FAERS Safety Report 14023471 (Version 1)
Quarter: 2017Q3

REPORT INFORMATION
  Report Type: Spontaneous
  Country: ZA (occurrence: ZA)
  Receive Date: 20170929
  Receipt Date: 20170929
  Transmission Date: 20171128
  Serious: Yes (Hospitalization)
  Sender: FDA-Public Use
  Company Number: ZA-TEVA-810128ISR

PATIENT
  Age: 33 Year
  Sex: Female

DRUGS (10)
  1. LEVOFLOXACIN. [Suspect]
     Active Substance: LEVOFLOXACIN
     Indication: TUBERCULOSIS
     Dosage: 1 GRAM DAILY;
     Route: 065
     Dates: start: 20170517, end: 20170828
  2. LAMIVUDINE. [Suspect]
     Active Substance: LAMIVUDINE
     Indication: TUBERCULOSIS
     Route: 065
     Dates: start: 201706, end: 20170828
  3. ETHAMBUTOL [Suspect]
     Active Substance: ETHAMBUTOL HYDROCHLORIDE
     Indication: TUBERCULOSIS
     Dosage: 1.25 MILLIGRAM DAILY;
     Route: 065
     Dates: start: 20170517, end: 20170828
  4. LINEZOLID. [Suspect]
     Active Substance: LINEZOLID
     Indication: TUBERCULOSIS
     Dosage: 600 MILLIGRAM DAILY;
     Route: 065
     Dates: start: 20170517, end: 20170828
  5. BEDAQUILINE [Suspect]
     Active Substance: BEDAQUILINE
     Indication: TUBERCULOSIS
     Route: 065
     Dates: end: 20170828
  6. NEVIRAPINE. [Suspect]
     Active Substance: NEVIRAPINE
     Indication: TUBERCULOSIS
     Route: 065
     Dates: start: 201706, end: 20170828
  7. ISONIAZIDE [Suspect]
     Active Substance: ISONIAZID
     Indication: TUBERCULOSIS
     Dosage: 800 MILLIGRAM DAILY;
     Route: 065
     Dates: start: 20170517, end: 20170519
  8. PYRAZINAMIDE. [Suspect]
     Active Substance: PYRAZINAMIDE
     Indication: TUBERCULOSIS
     Dosage: 1.75 MILLIGRAM DAILY;
     Route: 065
     Dates: start: 20170517, end: 20170828
  9. ABACAVIR. [Suspect]
     Active Substance: ABACAVIR
     Indication: TUBERCULOSIS
     Route: 065
     Dates: start: 201706, end: 20170828
  10. DELAMANID [Suspect]
     Active Substance: DELAMANID
     Indication: TUBERCULOSIS
     Dosage: 200 MILLIGRAM DAILY;
     Route: 065
     Dates: start: 20170517, end: 20170828

REACTIONS (8)
  - Hyponatraemia [Unknown]
  - Gastritis [Unknown]
  - Pelvic inflammatory disease [Unknown]
  - Vomiting [Unknown]
  - Liver function test abnormal [Unknown]
  - Drug-induced liver injury [Unknown]
  - Abdominal pain [Recovered/Resolved]
  - Vaginal discharge [Unknown]

NARRATIVE: CASE EVENT DATE: 20170828
